FAERS Safety Report 14332076 (Version 1)
Quarter: 2017Q4

REPORT INFORMATION
  Report Type: Spontaneous
  Country: US (occurrence: US)
  Receive Date: 20171227
  Receipt Date: 20171227
  Transmission Date: 20180321
  Serious: Yes (Life-Threatening, Disabling, Other)
  Sender: FDA-Public Use
  Company Number: None

PATIENT
  Sex: Female
  Weight: 47.25 kg

DRUGS (24)
  1. VITAMIN K2 [Concomitant]
     Active Substance: MENAQUINONE 6
  2. PREDNISONE. [Suspect]
     Active Substance: PREDNISONE
     Indication: CHRONIC OBSTRUCTIVE PULMONARY DISEASE
     Dosage: ?          QUANTITY:1 TABLET(S);?
     Route: 048
  3. OXYGEN. [Concomitant]
     Active Substance: OXYGEN
  4. MG [Concomitant]
     Active Substance: MAGNESIUM
  5. HYALURONIC ACID [Concomitant]
     Active Substance: HYALURONIC ACID
  6. VERAPAMIL [Concomitant]
     Active Substance: VERAPAMIL HYDROCHLORIDE
  7. VITAMIN B12 [Concomitant]
     Active Substance: CYANOCOBALAMIN
  8. WHEY PROTEIN [Concomitant]
     Active Substance: WHEY
  9. LEVAQUIN [Suspect]
     Active Substance: LEVOFLOXACIN
     Indication: CHRONIC OBSTRUCTIVE PULMONARY DISEASE
     Dosage: ?          QUANTITY:1 TABLET(S);?
     Route: 048
  10. LORAZAPAM [Concomitant]
     Active Substance: LORAZEPAM
  11. ZOLPIDEM [Concomitant]
     Active Substance: ZOLPIDEM\ZOLPIDEM TARTRATE
  12. PREDNISONE. [Concomitant]
     Active Substance: PREDNISONE
  13. SPIREVE HANDIHALER [Concomitant]
  14. COLLAGEN [Concomitant]
     Active Substance: COLLAGEN
  15. VITAMIN D3 [Concomitant]
     Active Substance: CHOLECALCIFEROL
  16. FISH OIL [Concomitant]
     Active Substance: FISH OIL
  17. COQ10 [Concomitant]
     Active Substance: UBIDECARENONE
  18. DIGOXIN. [Concomitant]
     Active Substance: DIGOXIN
  19. QVAR [Concomitant]
     Active Substance: BECLOMETHASONE DIPROPIONATE
  20. POTASSIUM [Concomitant]
     Active Substance: POTASSIUM
  21. VITAMIN E [Concomitant]
     Active Substance: .ALPHA.-TOCOPHEROL
  22. SEREVENT DISKUS [Concomitant]
     Active Substance: SALMETEROL XINAFOATE
  23. NEBULIZER ALBUTEROL [Concomitant]
     Active Substance: ALBUTEROL
  24. VITAMIN C [Concomitant]
     Active Substance: ASCORBIC ACID

REACTIONS (14)
  - Weight decreased [None]
  - Spinal fracture [None]
  - Insomnia [None]
  - Alopecia [None]
  - Drug effect increased [None]
  - Artificial crown procedure [None]
  - Muscle atrophy [None]
  - Cachexia [None]
  - Fatigue [None]
  - Treatment failure [None]
  - Candida infection [None]
  - Contusion [None]
  - Quality of life decreased [None]
  - Chronic obstructive pulmonary disease [None]

NARRATIVE: CASE EVENT DATE: 20150501
